FAERS Safety Report 11198689 (Version 2)
Quarter: 2015Q3

REPORT INFORMATION
  Report Type: Spontaneous
  Country: US (occurrence: US)
  Receive Date: 20150618
  Receipt Date: 20150902
  Transmission Date: 20151125
  Serious: No
  Sender: FDA-Public Use
  Company Number: US-ASTRAZENECA-2015SE56447

PATIENT
  Age: 217 Day
  Sex: Male
  Weight: 8.8 kg

DRUGS (7)
  1. NEXIUM [Suspect]
     Active Substance: ESOMEPRAZOLE MAGNESIUM
     Indication: EROSIVE OESOPHAGITIS
     Route: 048
  2. NEXIUM [Suspect]
     Active Substance: ESOMEPRAZOLE MAGNESIUM
     Indication: GASTROOESOPHAGEAL REFLUX DISEASE
     Route: 048
     Dates: start: 201508
  3. NEXIUM [Suspect]
     Active Substance: ESOMEPRAZOLE MAGNESIUM
     Indication: GASTROOESOPHAGEAL REFLUX DISEASE
     Route: 048
  4. NEXIUM [Suspect]
     Active Substance: ESOMEPRAZOLE MAGNESIUM
     Indication: GASTROOESOPHAGEAL REFLUX DISEASE
     Dosage: 5 MG NEXIUM RX OS IN THE EVENING IN ADDITION TO THE 10 MG MORNING DOSE
     Route: 048
     Dates: start: 20150815
  5. NEXIUM [Suspect]
     Active Substance: ESOMEPRAZOLE MAGNESIUM
     Indication: EROSIVE OESOPHAGITIS
     Dosage: 5 MG NEXIUM RX OS IN THE EVENING IN ADDITION TO THE 10 MG MORNING DOSE
     Route: 048
     Dates: start: 20150815
  6. ZANTAC [Concomitant]
     Active Substance: RANITIDINE HYDROCHLORIDE
     Indication: EROSIVE OESOPHAGITIS
     Dates: start: 20150529
  7. NEXIUM [Suspect]
     Active Substance: ESOMEPRAZOLE MAGNESIUM
     Indication: EROSIVE OESOPHAGITIS
     Route: 048
     Dates: start: 201508

REACTIONS (7)
  - Regurgitation [Unknown]
  - Vomiting [Unknown]
  - Off label use [Unknown]
  - Decreased appetite [Unknown]
  - Crying [Unknown]
  - Screaming [Unknown]
  - Throat irritation [Unknown]

NARRATIVE: CASE EVENT DATE: 20150808
